FAERS Safety Report 9519964 (Version 2)
Quarter: 2013Q3

REPORT INFORMATION
  Report Type: Report from Study
  Country: MX (occurrence: MX)
  Receive Date: 20130912
  Receipt Date: 20130912
  Transmission Date: 20140515
  Serious: Yes (Hospitalization)
  Sender: FDA-Public Use
  Company Number: MX-ROCHE-1236292

PATIENT
  Age: 43 Year
  Sex: Female
  Weight: 56 kg

DRUGS (2)
  1. XELODA [Suspect]
     Indication: COLON CANCER
     Route: 048
     Dates: start: 201302, end: 201305
  2. XELODA [Suspect]
     Route: 048
     Dates: start: 201305

REACTIONS (6)
  - Palmar-plantar erythrodysaesthesia syndrome [Not Recovered/Not Resolved]
  - Pruritus [Not Recovered/Not Resolved]
  - Rash [Not Recovered/Not Resolved]
  - Pain [Not Recovered/Not Resolved]
  - Large intestine perforation [Recovered/Resolved]
  - Gastrointestinal haemorrhage [Recovered/Resolved]
